APPROVED DRUG PRODUCT: FOLICET
Active Ingredient: FOLIC ACID
Strength: 1MG
Dosage Form/Route: TABLET;ORAL
Application: A087438 | Product #001
Applicant: MISSION PHARMACAL CO
Approved: Approved Prior to Jan 1, 1982 | RLD: No | RS: No | Type: DISCN